FAERS Safety Report 7493425-1 (Version None)
Quarter: 2011Q2

REPORT INFORMATION
  Report Type: 
  Country: None (occurrence: None)
  Receive Date: 20110520
  Receipt Date: 20110429
  Transmission Date: 20111010
  Serious: Yes (Hospitalization, Other)
  Sender: FDA-Public Use
  Company Number: US-BAYER-201027084NA

PATIENT
  Age: 22 Year
  Sex: Female
  Weight: 45 kg

DRUGS (6)
  1. KEFLEX [Concomitant]
     Dosage: 250 MG, QID
     Dates: start: 20070405
  2. KLOR-CON [Concomitant]
  3. YAZ [Suspect]
     Indication: PRODUCT USED FOR UNKNOWN INDICATION
     Route: 048
     Dates: start: 20070101
  4. SYNTHROID [Concomitant]
  5. ORAL CONTRACEPTIVE NOS [Concomitant]
  6. ZOSYN [Concomitant]
     Dosage: UNK
     Dates: start: 20070611

REACTIONS (4)
  - CHOLECYSTITIS CHRONIC [None]
  - GALLBLADDER DISORDER [None]
  - CHOLELITHIASIS [None]
  - ABDOMINAL PAIN UPPER [None]
